FAERS Safety Report 26070263 (Version 1)
Quarter: 2025Q4

REPORT INFORMATION
  Report Type: Other
  Country: CA (occurrence: CA)
  Receive Date: 20251120
  Receipt Date: 20251120
  Transmission Date: 20260117
  Serious: Yes (Other)
  Sender: CELLTRION
  Company Number: CA-CELLTRION INC.-2025CA041544

PATIENT

DRUGS (11)
  1. RITUXIMAB [Suspect]
     Active Substance: RITUXIMAB
     Indication: Burkitt^s lymphoma stage I
     Route: 065
  2. CISPLATIN [Concomitant]
     Active Substance: CISPLATIN
     Route: 042
  3. CYCLOPHOSPHAMIDE [Concomitant]
     Active Substance: CYCLOPHOSPHAMIDE
  4. CYTARABINE [Concomitant]
     Active Substance: CYTARABINE
  5. DEXAMETHASONE [Concomitant]
     Active Substance: DEXAMETHASONE
  6. DOXORUBICIN [Concomitant]
     Active Substance: DOXORUBICIN
  7. ETOPOSIDE [Concomitant]
     Active Substance: ETOPOSIDE
  8. GEMCITABINE HYDROCHLORIDE [Concomitant]
     Active Substance: GEMCITABINE HYDROCHLORIDE
  9. IFOSFAMIDE [Concomitant]
     Active Substance: IFOSFAMIDE
  10. PREDNISONE [Concomitant]
     Active Substance: PREDNISONE
  11. VINCRISTINE SULFATE [Concomitant]
     Active Substance: VINCRISTINE SULFATE

REACTIONS (4)
  - Burkitt^s lymphoma stage I [Unknown]
  - Burkitt^s lymphoma recurrent [Unknown]
  - Therapy partial responder [Unknown]
  - Intentional product use issue [Unknown]
